FAERS Safety Report 5870465-7 (Version None)
Quarter: 2008Q3

REPORT INFORMATION
  Report Type: 
  Country: None (occurrence: None)
  Receive Date: 20080904
  Receipt Date: 20071017
  Transmission Date: 20090109
  Serious: No
  Sender: FDA-Public Use
  Company Number: US-BRISTOL-MYERS SQUIBB COMPANY-13946181

PATIENT
  Age: 8 Decade
  Sex: Male

DRUGS (1)
  1. DEFINITY [Suspect]
     Dosage: STRENGTH:  1.3CC OF DEFINITY IN 8.7CC OF NONBACTERIOSTATIC SALINE
     Route: 042
     Dates: start: 20071005, end: 20071005

REACTIONS (1)
  - BACK PAIN [None]
